FAERS Safety Report 22655073 (Version 1)
Quarter: 2023Q2

REPORT INFORMATION
  Report Type: Spontaneous
  Country: US (occurrence: None)
  Receive Date: 20230628
  Receipt Date: 20230628
  Transmission Date: 20230722
  Serious: Yes (unspecified)
  Sender: FDA-Public Use
  Company Number: None

PATIENT
  Age: 25 Year
  Sex: Female
  Weight: 45 kg

DRUGS (1)
  1. MONISTAT 3 3-DAY PRE-FILLED APPLICATORS [Suspect]
     Active Substance: MICONAZOLE NITRATE
     Indication: Vulvovaginal mycotic infection
     Dosage: OTHER STRENGTH : G;?OTHER QUANTITY : 3 SUPPOSITORY(IES);?FREQUENCY : AT BEDTIME;?
     Route: 067
     Dates: start: 20230625, end: 20230627

REACTIONS (5)
  - Vulvovaginal pruritus [None]
  - Vulvovaginal burning sensation [None]
  - Genital rash [None]
  - Genital swelling [None]
  - Genital erythema [None]

NARRATIVE: CASE EVENT DATE: 20230628
